FAERS Safety Report 6882385-X (Version None)
Quarter: 2010Q3

REPORT INFORMATION
  Report Type: 
  Country: None (occurrence: None)
  Receive Date: 20100729
  Receipt Date: 20100722
  Transmission Date: 20110219
  Serious: Yes (Hospitalization)
  Sender: FDA-Public Use
  Company Number: FR-ABBOTT-10P-056-0659126-00

PATIENT
  Age: 78 Year
  Sex: Female

DRUGS (4)
  1. HUMIRA [Suspect]
     Indication: PRODUCT USED FOR UNKNOWN INDICATION
     Dosage: 80 MG LOADING DOSE
     Route: 058
     Dates: start: 20100421, end: 20100421
  2. ENBREL [Suspect]
     Indication: PRODUCT USED FOR UNKNOWN INDICATION
     Dates: start: 20010101, end: 20090101
  3. ENBREL [Suspect]
     Dates: start: 20090101, end: 20100407
  4. CORTICOSTEROIDS [Concomitant]
     Indication: PRODUCT USED FOR UNKNOWN INDICATION
     Route: 061

REACTIONS (8)
  - DERMATITIS EXFOLIATIVE [None]
  - ECZEMA [None]
  - ERYTHEMA [None]
  - INSOMNIA [None]
  - LYMPHADENOPATHY [None]
  - PRURITUS [None]
  - PYREXIA [None]
  - RASH [None]
